FAERS Safety Report 25079274 (Version 2)
Quarter: 2025Q4

REPORT INFORMATION
  Report Type: Spontaneous
  Country: US (occurrence: US)
  Receive Date: 20250314
  Receipt Date: 20251017
  Transmission Date: 20260118
  Serious: Yes (Hospitalization, Other)
  Sender: COOPERSURGICAL
  Company Number: US-COOPERSURGICAL, INC.-2025CPS001829

PATIENT
  Age: 23 Year
  Sex: Female
  Weight: 58.957 kg

DRUGS (1)
  1. PARAGARD T 380A [Suspect]
     Active Substance: COPPER
     Indication: Contraception
     Dosage: UNK
     Route: 015
     Dates: start: 20151116, end: 20220901

REACTIONS (24)
  - Reproductive complication associated with device [Not Recovered/Not Resolved]
  - Intra-abdominal fluid collection [Unknown]
  - Device breakage [Recovered/Resolved]
  - Complication of device removal [Recovered/Resolved]
  - Intestinal perforation [Recovered/Resolved]
  - Uterine perforation [Recovered/Resolved]
  - Device dislocation [Recovered/Resolved]
  - Peritonitis [Recovering/Resolving]
  - Pelvic inflammatory disease [Unknown]
  - Embedded device [Recovered/Resolved]
  - Emotional disorder [Unknown]
  - Haematuria [Unknown]
  - Dysuria [Recovered/Resolved]
  - Genitourinary tract infection [Unknown]
  - Trichomoniasis [Unknown]
  - Infection [Recovered/Resolved]
  - Abnormal uterine bleeding [Unknown]
  - Nausea [Recovered/Resolved]
  - Vaginal discharge [Unknown]
  - Back pain [Recovered/Resolved]
  - Pelvic pain [Unknown]
  - Abdominal distension [Unknown]
  - Abdominal adhesions [Unknown]
  - Bacterial vaginosis [Unknown]

NARRATIVE: CASE EVENT DATE: 20160111
